FAERS Safety Report 6456072-6 (Version None)
Quarter: 2009Q4

REPORT INFORMATION
  Report Type: 
  Country: None (occurrence: None)
  Receive Date: 20091125
  Receipt Date: 20091116
  Transmission Date: 20100525
  Serious: Yes (Other)
  Sender: FDA-Public Use
  Company Number: GB-JNJFOC-20091105060

PATIENT
  Sex: Female

DRUGS (2)
  1. RISPERDAL [Suspect]
     Indication: DRUG USE FOR UNKNOWN INDICATION
     Route: 048
  2. ANTIPSYCHOTICS [Concomitant]
     Route: 065

REACTIONS (2)
  - BONE MARROW FAILURE [None]
  - WHITE BLOOD CELL COUNT DECREASED [None]
